FAERS Safety Report 16773334 (Version 1)
Quarter: 2019Q3

REPORT INFORMATION
  Report Type: Spontaneous
  Country: US (occurrence: US)
  Receive Date: 20190904
  Receipt Date: 20190904
  Transmission Date: 20191005
  Serious: No
  Sender: FDA-Public Use
  Company Number: US-PURDUE-USA-2018-0145310

PATIENT
  Sex: Male

DRUGS (1)
  1. OXYCODONE/ ACETAMINOPHEN TABLETS [Suspect]
     Active Substance: ACETAMINOPHEN\OXYCODONE HYDROCHLORIDE
     Indication: PRODUCT USED FOR UNKNOWN INDICATION
     Dosage: 10MG / 325MG
     Route: 048

REACTIONS (4)
  - Pruritus generalised [Not Recovered/Not Resolved]
  - Eczema [Recovered/Resolved]
  - Rash vesicular [Recovered/Resolved]
  - Product substitution issue [Unknown]
